FAERS Safety Report 7364116-2 (Version None)
Quarter: 2011Q1

REPORT INFORMATION
  Report Type: 
  Country: None (occurrence: None)
  Receive Date: 20110321
  Receipt Date: 20110315
  Transmission Date: 20110831
  Serious: Yes (Death, Hospitalization, Disabling)
  Sender: FDA-Public Use
  Company Number: PHHO2011US00730

PATIENT
  Sex: Male
  Weight: 59.5 kg

DRUGS (5)
  1. AMBIEN [Concomitant]
     Indication: INSOMNIA
  2. COLACE [Concomitant]
     Indication: PROPHYLAXIS
  3. VICODIN [Concomitant]
     Indication: PAIN
  4. STI571/CGP57148B [Suspect]
     Indication: GASTROINTESTINAL STROMAL TUMOUR
     Dosage: 400 MG, QD
     Dates: start: 20100522
  5. SENNA [Concomitant]
     Indication: PROPHYLAXIS

REACTIONS (17)
  - ABDOMINAL DISCOMFORT [None]
  - SEPSIS [None]
  - PULSE ABSENT [None]
  - OEDEMA PERIPHERAL [None]
  - CARDIO-RESPIRATORY ARREST [None]
  - BRADYCARDIA [None]
  - GASTROINTESTINAL PAIN [None]
  - ACIDOSIS [None]
  - BLOOD ALBUMIN DECREASED [None]
  - VOMITING [None]
  - PNEUMOPERITONEUM [None]
  - INTESTINAL PERFORATION [None]
  - DIARRHOEA [None]
  - TUMOUR NECROSIS [None]
  - PYREXIA [None]
  - ABDOMINAL PAIN LOWER [None]
  - HYPOTENSION [None]
